FAERS Safety Report 4485325-6 (Version None)
Quarter: 2004Q4

REPORT INFORMATION
  Report Type: 
  Country: None (occurrence: None)
  Receive Date: 20041025
  Receipt Date: 20041025
  Transmission Date: 20050328
  Serious: Yes (Life-Threatening, Hospitalization)
  Sender: FDA-Public Use
  Company Number: None

PATIENT
  Age: 71 Year
  Sex: Female
  Weight: 58 kg

DRUGS (7)
  1. GEMCITABINE [Suspect]
     Indication: OVARIAN CANCER
     Dosage: 600 MG/M2  D1+D8 Q21D
     Dates: start: 20041014
  2. TAXOL [Suspect]
     Dosage: 175 MG/M2   Q21D
     Dates: start: 20041007
  3. LACTULOSE [Concomitant]
  4. COMPAZINE [Concomitant]
  5. ANZEMET [Concomitant]
  6. ATENOLOLS [Concomitant]
  7. CARBOPLATIN [Suspect]
     Dosage: AUC Q 21D
     Dates: start: 20041007

REACTIONS (2)
  - FEBRILE NEUTROPENIA [None]
  - THROMBOCYTOPENIA [None]
